FAERS Safety Report 9466587 (Version 1)
Quarter: 2013Q3

REPORT INFORMATION
  Report Type: Spontaneous
  Country: CN (occurrence: CN)
  Receive Date: 20130820
  Receipt Date: 20130820
  Transmission Date: 20140515
  Serious: Yes (Other)
  Sender: FDA-Public Use
  Company Number: CN-PFIZER INC-2013238480

PATIENT
  Age: 52 Year
  Sex: Male

DRUGS (7)
  1. EPIRUBICIN HCL [Suspect]
     Indication: HEPATIC CANCER
     Dosage: 80 MG, UNK
     Route: 041
  2. DIPHENHYDRAMINE [Concomitant]
     Dosage: 20 MG, UNK
     Route: 030
  3. DEXAMETHASONE [Concomitant]
     Dosage: 5 MG, UNK
     Route: 041
  4. TROPISETRON [Concomitant]
     Dosage: 5 MG, UNK
     Route: 041
  5. LOSEC [Concomitant]
     Dosage: 40 MG, UNK
     Route: 042
  6. VITAMIN B6 [Concomitant]
     Dosage: 200 MG, UNK
     Route: 041
  7. GRANISETRON [Concomitant]
     Dosage: 6 MG, UNK
     Route: 042

REACTIONS (1)
  - Anaphylactic shock [Recovered/Resolved]
